FAERS Safety Report 15276845 (Version 1)
Quarter: 2018Q3

REPORT INFORMATION
  Report Type: Spontaneous
  Country: DE (occurrence: DE)
  Receive Date: 20180814
  Receipt Date: 20180814
  Transmission Date: 20181010
  Serious: Yes (Hospitalization)
  Sender: FDA-Public Use
  Company Number: DE-B. BRAUN MEDICAL INC.-2053711

PATIENT
  Age: 75 Year
  Sex: Male

DRUGS (11)
  1. FEBUXOSTAT. [Concomitant]
     Active Substance: FEBUXOSTAT
  2. PANTOPRAZOLE [Concomitant]
     Active Substance: PANTOPRAZOLE
  3. ACETYLSALICYLIC ACID [Suspect]
     Active Substance: ASPIRIN
  4. TAMSULOSIN [Concomitant]
     Active Substance: TAMSULOSIN
  5. ATORVASTATIN [Concomitant]
     Active Substance: ATORVASTATIN
  6. HEPARIN SODIUM IN DEXTROSE [Suspect]
     Active Substance: HEPARIN SODIUM
  7. COLECALCIFEROL [Concomitant]
     Active Substance: CHOLECALCIFEROL
  8. DIGITOXIN [Concomitant]
     Active Substance: DIGITOXIN
  9. FUROSEMIDE. [Concomitant]
     Active Substance: FUROSEMIDE
  10. METOPROLOL. [Concomitant]
     Active Substance: METOPROLOL
  11. LEVOTHYROXINE. [Concomitant]
     Active Substance: LEVOTHYROXINE

REACTIONS (1)
  - Haemoptysis [Unknown]

NARRATIVE: CASE EVENT DATE: 20151002
